FAERS Safety Report 15483647 (Version 1)
Quarter: 2018Q4

REPORT INFORMATION
  Report Type: Spontaneous
  Country: US (occurrence: US)
  Receive Date: 20181003
  Receipt Date: 20181003
  Transmission Date: 20190205
  Serious: Yes (Disabling, Other)
  Sender: FDA-Public Use
  Company Number: None

PATIENT
  Sex: Female
  Weight: 131.54 kg

DRUGS (12)
  1. SIMVASTATIN. [Concomitant]
     Active Substance: SIMVASTATIN
  2. PRUNELAX [Concomitant]
  3. ADVIL [Concomitant]
     Active Substance: IBUPROFEN
  4. HYDROCODONE/ACETAMINOPHEN 101 /325MG TAB GENERIC FOR NORCO 10/325 [Suspect]
     Active Substance: ACETAMINOPHEN\HYDROCODONE BITARTRATE
     Indication: PAIN
     Dosage: OTHER STRENGTH:10/325 MG;QUANTITY:1 PILL;OTHER FREQUENCY:EVERY 6 TO 8 HRS;?
     Dates: start: 20180402, end: 20180701
  5. ATENOLOL. [Concomitant]
     Active Substance: ATENOLOL
  6. CYCLOBENZAPRINE HYDROCHLORIDE. [Concomitant]
     Active Substance: CYCLOBENZAPRINE HYDROCHLORIDE
  7. LUTEIN [Concomitant]
     Active Substance: LUTEIN
  8. HYDROCODONE/ACETAMINOPHEN 101 /325MG TAB GENERIC FOR NORCO 10/325 [Suspect]
     Active Substance: ACETAMINOPHEN\HYDROCODONE BITARTRATE
     Indication: HYPOAESTHESIA
     Dosage: OTHER STRENGTH:10/325 MG;QUANTITY:1 PILL;OTHER FREQUENCY:EVERY 6 TO 8 HRS;?
     Dates: start: 20180402, end: 20180701
  9. CLONAZEPAM. [Concomitant]
     Active Substance: CLONAZEPAM
  10. LISINOPRIL. [Concomitant]
     Active Substance: LISINOPRIL
  11. ZEAXANTIN [Concomitant]
  12. HYDROCODONE/ACETAMINOPHEN 101 /325MG TAB GENERIC FOR NORCO 10/325 [Suspect]
     Active Substance: ACETAMINOPHEN\HYDROCODONE BITARTRATE
     Indication: BACK PAIN
     Dosage: OTHER STRENGTH:10/325 MG;QUANTITY:1 PILL;OTHER FREQUENCY:EVERY 6 TO 8 HRS;?
     Dates: start: 20180402, end: 20180701

REACTIONS (7)
  - Inadequate analgesia [None]
  - Drug ineffective [None]
  - Nausea [None]
  - Product substitution [None]
  - Product complaint [None]
  - Therapeutic response increased [None]
  - Abdominal pain upper [None]
